FAERS Safety Report 22041767 (Version 1)
Quarter: 2023Q1

REPORT INFORMATION
  Report Type: Spontaneous
  Country: US (occurrence: None)
  Receive Date: 20230224
  Receipt Date: 20230224
  Transmission Date: 20230418
  Serious: Yes (Hospitalization)
  Sender: FDA-Public Use
  Company Number: None

PATIENT
  Sex: Male

DRUGS (2)
  1. TEMOZOLOMIDE [Suspect]
     Active Substance: TEMOZOLOMIDE
     Indication: Brain neoplasm malignant
     Dosage: 250MG BY MOUTH??255 ONCE TIME A DAY AT NIGHT FOR 5 DAYS OF 28 DAY CYCLE.?
     Route: 048
     Dates: start: 20210922
  2. TEMOZOLOMIDE [Suspect]
     Active Substance: TEMOZOLOMIDE
     Indication: Brain neoplasm malignant
     Dosage: 5MG ORAL?255 ONCE TIME A DAY AT NIGHT FOR 5 DAYS OF 28 DAY CYCLE.??
     Route: 048
     Dates: start: 20210921

REACTIONS (2)
  - Vomiting [None]
  - Pyrexia [None]
